FAERS Safety Report 18290385 (Version 1)
Quarter: 2020Q3

REPORT INFORMATION
  Report Type: Spontaneous
  Country: ES (occurrence: ES)
  Receive Date: 20200921
  Receipt Date: 20200921
  Transmission Date: 20201103
  Serious: Yes (Other)
  Sender: FDA-Public Use
  Company Number: NVSC2020ES255676

PATIENT

DRUGS (1)
  1. LINEZOLID. [Suspect]
     Active Substance: LINEZOLID
     Indication: CENTRAL NERVOUS SYSTEM ABSCESS
     Dosage: UNK
     Route: 065

REACTIONS (2)
  - Product use in unapproved indication [Unknown]
  - Neuropathy peripheral [Unknown]
